FAERS Safety Report 5838676-4 (Version None)
Quarter: 2008Q3

REPORT INFORMATION
  Report Type: 
  Country: None (occurrence: None)
  Receive Date: 20080808
  Receipt Date: 20080731
  Transmission Date: 20090109
  Serious: Yes (Congenital Anomaly)
  Sender: FDA-Public Use
  Company Number: A0681913A

PATIENT
  Sex: Male
  Weight: 4.1 kg

DRUGS (7)
  1. PAXIL [Suspect]
     Indication: ANXIETY
     Dosage: 30MG PER DAY
     Dates: start: 20050101, end: 20060301
  2. VITAMIN TAB [Concomitant]
     Dates: start: 20061101, end: 20070101
  3. PHENERGAN HCL [Concomitant]
     Dates: start: 20060301, end: 20060601
  4. ZOFRAN [Concomitant]
     Dates: start: 20060401
  5. IBUPROFEN TABLETS [Concomitant]
  6. VISTARIL [Concomitant]
  7. WELLBUTRIN XL [Concomitant]
     Dates: start: 20051201, end: 20060308

REACTIONS (9)
  - ATRIAL SEPTAL DEFECT [None]
  - CARDIAC MURMUR [None]
  - DRUG EXPOSURE DURING PREGNANCY [None]
  - PATENT DUCTUS ARTERIOSUS [None]
  - PULMONARY ARTERIAL PRESSURE INCREASED [None]
  - RESPIRATORY FAILURE [None]
  - SHOULDER DYSTOCIA [None]
  - TRICUSPID VALVE INCOMPETENCE [None]
  - VENTRICULAR SEPTAL DEFECT [None]
